FAERS Safety Report 7320074-8 (Version None)
Quarter: 2011Q1

REPORT INFORMATION
  Report Type: 
  Country: None (occurrence: None)
  Receive Date: 20110228
  Receipt Date: 20110218
  Transmission Date: 20110831
  Serious: Yes (Hospitalization)
  Sender: FDA-Public Use
  Company Number: BE-ELI_LILLY_AND_COMPANY-BE201102005210

PATIENT
  Sex: Male
  Weight: 69.2 kg

DRUGS (10)
  1. CISPLATIN [Suspect]
     Indication: NON-SMALL CELL LUNG CANCER STAGE IV
     Dosage: 135 MG, OTHER
     Dates: start: 20110104
  2. XYZAL [Concomitant]
     Indication: RASH
     Dates: start: 20110127
  3. IBRUPROFEN [Concomitant]
     Indication: CHEST PAIN
     Dosage: UNK, AS NEEDED
     Dates: start: 20101115
  4. DAFALGAN [Concomitant]
     Indication: CHEST PAIN
     Dosage: UNK, AS NEEDED
     Dates: start: 20101101
  5. GEMCITABINE HYDROCHLORIDE [Suspect]
     Dosage: 2300 MG, OTHER
     Dates: start: 20110104
  6. NECITUMUMAB (11F8) (LY3012211) [Suspect]
     Indication: NON-SMALL CELL LUNG CANCER STAGE IV
     Dosage: 400 MG, OTHER
     Dates: start: 20110104
  7. DULCOLAX [Concomitant]
     Indication: CONSTIPATION
     Dates: start: 20110201
  8. COVERSYL [Concomitant]
     Indication: HYPERTENSION
     Dates: start: 20101228
  9. OMEPRAZOLE [Concomitant]
     Indication: GASTRITIS
     Dates: start: 20110126
  10. TETRALYSAL [Concomitant]
     Indication: RASH
     Dates: start: 20110119

REACTIONS (1)
  - HAEMOPTYSIS [None]
